FAERS Safety Report 17037140 (Version 4)
Quarter: 2020Q4

REPORT INFORMATION
  Report Type: Spontaneous
  Country: DE (occurrence: DE)
  Receive Date: 20191115
  Receipt Date: 20201207
  Transmission Date: 20210113
  Serious: Yes (Hospitalization, Congenital Anomaly, Other)
  Sender: FDA-Public Use
  Company Number: DE-ASTRAZENECA-2019SF59779

PATIENT
  Sex: Female

DRUGS (20)
  1. ERGENYL CHRONO [Suspect]
     Active Substance: VALPROIC ACID
     Dosage: 2300 MG, QD
     Route: 064
     Dates: start: 20131205, end: 20140221
  2. QUETIAPINE FUMARATE. [Suspect]
     Active Substance: QUETIAPINE FUMARATE
     Indication: BIPOLAR DISORDER
     Route: 064
  3. VALPROATE SODIUM. [Suspect]
     Active Substance: VALPROATE SODIUM
     Indication: EPILEPSY
     Dosage: 2300 MG, QD
     Route: 064
     Dates: start: 20140222, end: 20140714
  4. PANTOPRAZOL [Concomitant]
     Active Substance: PANTOPRAZOLE SODIUM
     Route: 065
  5. MACROGOL [Concomitant]
     Active Substance: POLYETHYLENE GLYCOLS
     Indication: CONSTIPATION
     Route: 065
  6. VALPROATE SODIUM. [Suspect]
     Active Substance: VALPROATE SODIUM
     Indication: EPILEPSY
     Dosage: 1300 - 2500 MG DAILY
     Route: 064
     Dates: start: 201311, end: 20140725
  7. ERGENYL CHRONO [Suspect]
     Active Substance: VALPROIC ACID
     Route: 064
     Dates: start: 20140715, end: 20140725
  8. L-THYROXINE [Concomitant]
     Active Substance: LEVOTHYROXINE
     Dosage: 50UG/INHAL DAILY
     Route: 065
  9. QUETIAPINE FUMARATE. [Suspect]
     Active Substance: QUETIAPINE FUMARATE
     Indication: BIPOLAR DISORDER
     Route: 064
  10. LITHIUM. [Suspect]
     Active Substance: LITHIUM
     Indication: BIPOLAR DISORDER
     Route: 064
  11. LITHIUM. [Suspect]
     Active Substance: LITHIUM
     Indication: BIPOLAR DISORDER
     Route: 064
  12. VALPROATE SODIUM. [Suspect]
     Active Substance: VALPROATE SODIUM
     Indication: BIPOLAR I DISORDER
     Dosage: 2300 MG, QD
     Route: 064
     Dates: start: 20140222, end: 20140714
  13. NOVORAPID [Concomitant]
     Active Substance: INSULIN ASPART
     Indication: GESTATIONAL DIABETES
     Dosage: 5.5 IU THROUGHOUT THE DAY
     Route: 064
     Dates: start: 2014
  14. VALPROATE SODIUM. [Suspect]
     Active Substance: VALPROATE SODIUM
     Indication: EPILEPSY
     Dosage: 1300 - 2500 MG DAILY
     Route: 064
  15. ERGENYL CHRONO [Suspect]
     Active Substance: VALPROIC ACID
     Dosage: UNK UNK,UNK
     Route: 064
     Dates: start: 201311, end: 20140725
  16. VALPROATE SODIUM. [Suspect]
     Active Substance: VALPROATE SODIUM
     Indication: BIPOLAR I DISORDER
     Dosage: 1300 - 2500 MG DAILY
     Route: 064
  17. VALPROATE SODIUM. [Suspect]
     Active Substance: VALPROATE SODIUM
     Indication: BIPOLAR I DISORDER
     Dosage: 1300 - 2500 MG DAILY
     Route: 064
     Dates: start: 201311, end: 20140725
  18. L-THYROXINE [Concomitant]
     Active Substance: LEVOTHYROXINE
     Dosage: 50UG/INHAL DAILY
     Route: 065
  19. DICLOFENAC [Concomitant]
     Active Substance: DICLOFENAC
     Indication: SCIATICA
     Dosage: 75 MG DAILY FOR LUMBOISCHIALGIA FOR ANOTHER 7 DA
     Route: 065
  20. PROTAPHANE [Concomitant]
     Active Substance: INSULIN HUMAN
     Indication: GESTATIONAL DIABETES
     Route: 064
     Dates: start: 2014

REACTIONS (46)
  - Bronchitis [Unknown]
  - Late metabolic acidosis of newborn [Unknown]
  - Mitral valve incompetence [Recovered/Resolved]
  - Sleep apnoea syndrome [Unknown]
  - Myoclonus [Unknown]
  - Fine motor skill dysfunction [Unknown]
  - Atrial septal defect [Recovered/Resolved]
  - Cystic fibrosis [Unknown]
  - Mental disability [Not Recovered/Not Resolved]
  - Disorientation [Unknown]
  - Speech disorder developmental [Unknown]
  - Hypotonia [Unknown]
  - Developmental coordination disorder [Unknown]
  - Emotional disorder [Unknown]
  - Polycystic ovaries [Unknown]
  - Ear infection [Unknown]
  - Hypokinesia [Not Recovered/Not Resolved]
  - Tachypnoea [Unknown]
  - Ventricular septal defect [Recovered/Resolved]
  - Foetal anticonvulsant syndrome [Not Recovered/Not Resolved]
  - Gross motor delay [Not Recovered/Not Resolved]
  - Sensory integrative dysfunction [Not Recovered/Not Resolved]
  - Congenital hand malformation [Unknown]
  - Sensory disturbance [Recovering/Resolving]
  - Accidental exposure to product by child [Unknown]
  - Adjustment disorder [Unknown]
  - Toxicity to various agents [Unknown]
  - Gastroenteritis rotavirus [Recovered/Resolved]
  - Movement disorder [Recovering/Resolving]
  - Respiratory syncytial virus infection [Unknown]
  - Foetal exposure during pregnancy [Unknown]
  - Neonatal respiratory acidosis [Unknown]
  - Muscle twitching [Unknown]
  - Respiratory tract infection [Recovered/Resolved]
  - Motor developmental delay [Unknown]
  - Congenital eyelid malformation [Unknown]
  - Autism spectrum disorder [Unknown]
  - Developmental delay [Recovering/Resolving]
  - Cognitive disorder [Unknown]
  - Wheezing [Unknown]
  - Congenital nose malformation [Unknown]
  - Congenital foot malformation [Unknown]
  - Muscle tone disorder [Not Recovered/Not Resolved]
  - Tricuspid valve incompetence [Unknown]
  - Social problem [Unknown]
  - Withdrawal syndrome [Unknown]

NARRATIVE: CASE EVENT DATE: 20140725
